FAERS Safety Report 9779148 (Version 1)
Quarter: 2013Q4

REPORT INFORMATION
  Report Type: Report from Study
  Country: US (occurrence: US)
  Receive Date: 20131223
  Receipt Date: 20131223
  Transmission Date: 20140711
  Serious: Yes (Death, Other)
  Sender: FDA-Public Use
  Company Number: US-BAXTER-2013BAX051462

PATIENT
  Age: 44 Year
  Sex: Female

DRUGS (5)
  1. CYCLOPHOSPHAMIDE FOR INJECTION, USP [Suspect]
     Indication: BREAST CANCER
     Dosage: X 4 CYCLES
     Route: 065
  2. DOXORUBICIN [Suspect]
     Indication: BREAST CANCER
     Dosage: X 4 CYCLES
     Route: 065
  3. PACLITAXEL [Suspect]
     Indication: BREAST CANCER
     Dosage: X 12
     Route: 065
  4. TRASTUZUMAB [Suspect]
     Indication: BREAST CANCER
     Route: 065
  5. TRASTUZUMAB [Suspect]
     Dosage: COMPLETE 1 YEAR OF TREATMENT
     Route: 065

REACTIONS (2)
  - Metastases to bone [Fatal]
  - Cardiac failure congestive [Recovered/Resolved]
